FAERS Safety Report 11657016 (Version 2)
Quarter: 2015Q4

REPORT INFORMATION
  Report Type: Spontaneous
  Country: US (occurrence: US)
  Receive Date: 20151023
  Receipt Date: 20151030
  Transmission Date: 20160304
  Serious: Yes (Other)
  Sender: FDA-Public Use
  Company Number: US-BAUSCH-BL-2015-013586

PATIENT
  Age: 52 Year
  Sex: Female

DRUGS (1)
  1. XENAZINE [Suspect]
     Active Substance: TETRABENAZINE
     Indication: HUNTINGTON^S DISEASE
     Route: 048
     Dates: start: 20150209, end: 20150828

REACTIONS (3)
  - Adverse drug reaction [Recovering/Resolving]
  - Depression [Recovering/Resolving]
  - Huntington^s disease [Recovering/Resolving]

NARRATIVE: CASE EVENT DATE: 2015
